FAERS Safety Report 7720146-X (Version None)
Quarter: 2011Q3

REPORT INFORMATION
  Report Type: 
  Country: None (occurrence: None)
  Receive Date: 20110826
  Receipt Date: 20110826
  Transmission Date: 20111222
  Serious: No
  Sender: FDA-Public Use
  Company Number: None

PATIENT
  Age: 50 Year
  Sex: Male
  Weight: 108.8633 kg

DRUGS (4)
  1. VALIUM [Concomitant]
  2. OXYCONTIN [Concomitant]
  3. ZANAFLEX [Concomitant]
  4. OXYCODONE HCL [Suspect]
     Indication: PAIN MANAGEMENT
     Dosage: 30 MG 4 X DAY ORAL
     Route: 048
     Dates: start: 20110705

REACTIONS (2)
  - PRODUCT SUBSTITUTION ISSUE [None]
  - DRUG INEFFECTIVE [None]
